FAERS Safety Report 7902874-6 (Version None)
Quarter: 2011Q4

REPORT INFORMATION
  Report Type: 
  Country: None (occurrence: None)
  Receive Date: 20111107
  Receipt Date: 20111024
  Transmission Date: 20120403
  Serious: Yes (Hospitalization)
  Sender: FDA-Public Use
  Company Number: 2011CP000169

PATIENT
  Age: 70 Year
  Sex: Male

DRUGS (3)
  1. ACETAMINOPHEN [Suspect]
  2. ROCEPHIN [Suspect]
     Indication: PROSTATITIS
     Dosage: 1 GRAM:1/1/IV
     Dates: start: 20110920, end: 20110921
  3. ACETAMINOPHEN [Suspect]
     Indication: PROSTATITIS
     Dosage: ;IV
     Route: 042
     Dates: start: 20110920, end: 20110921

REACTIONS (3)
  - EPISTAXIS [None]
  - GINGIVAL BLEEDING [None]
  - THROMBOCYTOPENIA [None]
